FAERS Safety Report 20778225 (Version 1)
Quarter: 2022Q2

REPORT INFORMATION
  Report Type: Spontaneous
  Country: US (occurrence: None)
  Receive Date: 20220502
  Receipt Date: 20220502
  Transmission Date: 20220720
  Serious: Yes (Other)
  Sender: FDA-Public Use
  Company Number: None

PATIENT
  Age: 34 Year
  Sex: Female
  Weight: 147.42 kg

DRUGS (12)
  1. AIMOVIG [Suspect]
     Active Substance: ERENUMAB-AOOE
     Indication: Migraine prophylaxis
     Dosage: FREQUENCY : MONTHLY;?
     Dates: start: 20220210, end: 20220408
  2. CELEBREX [Concomitant]
     Active Substance: CELECOXIB
  3. ORILISSA [Concomitant]
     Active Substance: ELAGOLIX SODIUM
  4. FIORINAL WITH CODEINE [Concomitant]
     Active Substance: ASPIRIN\BUTALBITAL\CAFFEINE\CODEINE PHOSPHATE
  5. PROMETHAZINE [Concomitant]
     Active Substance: PROMETHAZINE HYDROCHLORIDE
  6. PHENTERMINE [Concomitant]
     Active Substance: PHENTERMINE
  7. Lidocaine nasal spray [Concomitant]
  8. MAGNESIUM [Concomitant]
     Active Substance: MAGNESIUM
  9. RIBOFLAVIN [Concomitant]
     Active Substance: RIBOFLAVIN
  10. Allergy Relief [Concomitant]
  11. CRANBERRY [Concomitant]
     Active Substance: CRANBERRY
  12. Prebiotic and Probiotic with Cranberry [Concomitant]

REACTIONS (3)
  - Pain in jaw [None]
  - Arthralgia [None]
  - Muscle tightness [None]

NARRATIVE: CASE EVENT DATE: 20220310
